FAERS Safety Report 5087566-6 (Version None)
Quarter: 2006Q3

REPORT INFORMATION
  Report Type: 
  Country: None (occurrence: None)
  Receive Date: 20060822
  Receipt Date: 20060822
  Transmission Date: 20061208
  Serious: Yes (Hospitalization)
  Sender: FDA-Public Use
  Company Number: None

PATIENT
  Age: 55 Year
  Sex: Male
  Weight: 118.5 kg

DRUGS (19)
  1. BACTRIM DS [Suspect]
     Indication: CELLULITIS
     Dosage: 1 TAB DAILY, PO
     Route: 048
     Dates: start: 20060415, end: 20060417
  2. BACTRIM DS [Suspect]
     Indication: SCROTAL DISORDER
     Dosage: 1 TAB DAILY, PO
     Route: 048
     Dates: start: 20060415, end: 20060417
  3. CLINDAMYCIN [Concomitant]
  4. LISINOPRIL [Concomitant]
  5. ALENDRONATE SODIUM [Concomitant]
  6. ALLOPURINOL [Concomitant]
  7. ASPIRIN [Concomitant]
  8. ATENOLOL [Concomitant]
  9. CYCLOSPORINE [Concomitant]
  10. FELODIPINE [Concomitant]
  11. FEXOFENADINE [Concomitant]
  12. HYDROCHLOROTHIAZIDE [Concomitant]
  13. MYCOPHENOLATE MOFETIL [Concomitant]
  14. OMEPRAZOLE [Concomitant]
  15. PREDNISONE TAB [Concomitant]
  16. SIMVASTATIN [Concomitant]
  17. SODIUM BICARC [Concomitant]
  18. TETRACYCLINE [Concomitant]
  19. TAMSULOSIN HCL [Concomitant]

REACTIONS (6)
  - DRUG HYPERSENSITIVITY [None]
  - ILL-DEFINED DISORDER [None]
  - NEPHRITIS INTERSTITIAL [None]
  - RENAL DISORDER [None]
  - RENAL FAILURE ACUTE [None]
  - TRANSPLANT REJECTION [None]
